FAERS Safety Report 5224464-9 (Version None)
Quarter: 2007Q1

REPORT INFORMATION
  Report Type: 
  Country: None (occurrence: None)
  Receive Date: 20070130
  Receipt Date: 20070124
  Transmission Date: 20070707
  Serious: Yes (Other)
  Sender: FDA-Public Use
  Company Number: GB-MERCK-0701GBR00192

PATIENT
  Age: 82 Year
  Sex: Female
  Weight: 50 kg

DRUGS (4)
  1. SINGULAIR [Suspect]
     Indication: ASTHMA
     Route: 048
     Dates: start: 20070103, end: 20070104
  2. PREDNISOLONE [Concomitant]
     Indication: ASTHMA
     Route: 048
  3. FLUTICASONE PROPIONATE AND SALMETEROL XINAFOATE [Concomitant]
     Indication: ASTHMA
     Dates: start: 20070102
  4. ALBUTEROL SULFATE [Concomitant]
     Indication: ASTHMA

REACTIONS (4)
  - ERYTHEMA [None]
  - MIGRAINE [None]
  - PRURITUS [None]
  - RASH [None]
